FAERS Safety Report 4807371-2 (Version None)
Quarter: 2005Q4

REPORT INFORMATION
  Report Type: 
  Country: None (occurrence: None)
  Receive Date: 20051024
  Receipt Date: 20050705
  Transmission Date: 20060501
  Serious: Yes (Hospitalization, Disabling)
  Sender: FDA-Public Use
  Company Number: US-MERCK-0507USA00634

PATIENT
  Age: 56 Year
  Sex: Male
  Weight: 84 kg

DRUGS (8)
  1. VIOXX [Suspect]
     Indication: ARTHRITIS
     Route: 048
     Dates: start: 20020801, end: 20040801
  2. VIOXX [Suspect]
     Route: 065
  3. ASPIRIN [Concomitant]
     Route: 065
  4. VASOTEC [Concomitant]
     Route: 065
  5. CARDIZEM [Concomitant]
     Route: 065
     Dates: end: 20030630
  6. GLUCOPHAGE [Concomitant]
     Indication: DIABETES MELLITUS
     Route: 065
  7. ZOCOR [Concomitant]
     Route: 065
  8. NITROGLYCERIN [Concomitant]
     Route: 065

REACTIONS (7)
  - BALANCE DISORDER [None]
  - CORONARY ARTERY RESTENOSIS [None]
  - DEAFNESS [None]
  - DEPRESSION [None]
  - MYOCARDIAL INFARCTION [None]
  - NECK MASS [None]
  - TINNITUS [None]
